FAERS Safety Report 7712384-7 (Version None)
Quarter: 2011Q3

REPORT INFORMATION
  Report Type: 
  Country: None (occurrence: None)
  Receive Date: 20110826
  Receipt Date: 20110823
  Transmission Date: 20111222
  Serious: Yes (Hospitalization)
  Sender: FDA-Public Use
  Company Number: FR-ROCHE-798285

PATIENT
  Sex: Female

DRUGS (13)
  1. METHOTREXATE [Concomitant]
  2. BONIVA [Suspect]
     Route: 065
     Dates: start: 20070927, end: 20090311
  3. METHOTREXATE [Concomitant]
     Indication: SJOGREN'S SYNDROME
     Dates: start: 20020101
  4. SPECIAFOLDINE [Concomitant]
  5. FENOFIBRATE [Concomitant]
  6. STRUCTUM [Concomitant]
  7. KETOPROFEN [Concomitant]
  8. ESCITALOPRAM OXALATE [Concomitant]
  9. PREDNISONE [Suspect]
     Indication: SJOGREN'S SYNDROME
     Route: 065
     Dates: start: 20020101, end: 20091201
  10. SPIRONOLACTONE [Concomitant]
  11. MORPHINE SULFATE [Concomitant]
  12. VITAMIN D [Concomitant]
  13. ZOLPIDEM [Concomitant]

REACTIONS (1)
  - DENTAL ALVEOLAR ANOMALY [None]
